FAERS Safety Report 8370841-7 (Version None)
Quarter: 2012Q2

REPORT INFORMATION
  Report Type: 
  Country: None (occurrence: None)
  Receive Date: 20120518
  Receipt Date: 20110404
  Transmission Date: 20120825
  Serious: No
  Sender: FDA-Public Use
  Company Number: US-ASTRAZENECA-2011SE21298

PATIENT
  Sex: Female

DRUGS (2)
  1. CARDIAC THERAPY [Concomitant]
     Dosage: UNKNOWN
  2. PRILOSEC OTC [Suspect]
     Indication: GASTROOESOPHAGEAL REFLUX DISEASE
     Route: 048
     Dates: start: 20110101, end: 20110105

REACTIONS (5)
  - ABDOMINAL PAIN [None]
  - FLATULENCE [None]
  - DIARRHOEA [None]
  - ABDOMINAL DISTENSION [None]
  - DRUG INEFFECTIVE FOR UNAPPROVED INDICATION [None]
